FAERS Safety Report 8902316 (Version 1)
Quarter: 2012Q4

REPORT INFORMATION
  Report Type: 
  Country: US (occurrence: US)
  Receive Date: 20121112
  Receipt Date: 20121112
  Transmission Date: 20130627
  Serious: No
  Sender: FDA-Public Use
  Company Number: US-PFIZER INC-2012280401

PATIENT
  Age: 40 Year
  Sex: Female

DRUGS (5)
  1. GABAPENTIN [Suspect]
     Indication: FIBROMYALGIA
     Dosage: 300 mg, 2x/day
     Route: 048
  2. GABAPENTIN [Suspect]
     Indication: CYSTITIS INTERSTITIAL
     Dosage: 300 mg, 2x/day
     Route: 048
     Dates: start: 2011, end: 2012
  3. ZOLOFT [Concomitant]
     Dosage: UNK
  4. AMBIEN [Concomitant]
     Indication: SLEEP PROBLEM
     Dosage: UNK, as needed
  5. DICYCLOMINE [Concomitant]
     Indication: IRRITABLE BOWEL SYNDROME
     Dosage: UNK

REACTIONS (2)
  - Off label use [Unknown]
  - Drug ineffective for unapproved indication [Unknown]
